FAERS Safety Report 8182093-1 (Version None)
Quarter: 2012Q1

REPORT INFORMATION
  Report Type: 
  Country: None (occurrence: None)
  Receive Date: 20120302
  Receipt Date: 20120223
  Transmission Date: 20120608
  Serious: Yes (Other)
  Sender: FDA-Public Use
  Company Number: PHHY2011SI106212

PATIENT
  Sex: Female

DRUGS (3)
  1. FEMARA [Suspect]
  2. FEMARA [Suspect]
     Indication: BREAST CANCER
     Dates: start: 20090217, end: 20110921
  3. PIRAMIL [Concomitant]
     Dosage: 2.5 MG, DAILY
     Route: 065
     Dates: start: 20110501

REACTIONS (3)
  - CHEST PAIN [None]
  - DIABETES MELLITUS [None]
  - BLOOD PRESSURE INCREASED [None]
